FAERS Safety Report 9277368 (Version 1)
Quarter: 2013Q2

REPORT INFORMATION
  Report Type: Spontaneous
  Country: US (occurrence: None)
  Receive Date: 20130503
  Receipt Date: 20130503
  Transmission Date: 20140414
  Serious: Yes (Other)
  Sender: FDA-Public Use
  Company Number: None

PATIENT
  Age: 7 Year
  Sex: Female
  Weight: 33.11 kg

DRUGS (1)
  1. AMPHETAMINE AND DEXTROAMPHETAMINE [Suspect]
     Indication: ATTENTION DEFICIT/HYPERACTIVITY DISORDER
     Dosage: 1ST DOSE
     Dates: start: 20130316

REACTIONS (3)
  - Rash [None]
  - Hyperhidrosis [None]
  - Staring [None]
